FAERS Safety Report 7729507-6 (Version None)
Quarter: 2011Q3

REPORT INFORMATION
  Report Type: 
  Country: None (occurrence: None)
  Receive Date: 20110906
  Receipt Date: 20110826
  Transmission Date: 20111222
  Serious: Yes (Hospitalization)
  Sender: FDA-Public Use
  Company Number: US-JNJFOC-20110511882

PATIENT
  Sex: Female
  Weight: 35.83 kg

DRUGS (5)
  1. MORPHINE [Suspect]
     Indication: DELIRIUM
     Dosage: EVERY 2 HOURS
     Route: 065
     Dates: start: 20110410, end: 20110411
  2. DIPHENHYDRAMINE HCL [Suspect]
     Indication: DELIRIUM
     Dosage: EVERY 3 HOURS
     Route: 065
     Dates: start: 20110410, end: 20110411
  3. DIPHENHYDRAMINE HCL [Suspect]
     Route: 065
  4. NORCO [Suspect]
     Indication: DELIRIUM
     Dosage: EVERY 3 HOURS
     Route: 065
     Dates: start: 20110410, end: 20110411
  5. HALDOL [Suspect]
     Indication: DELIRIUM
     Dosage: AS NEEDED
     Route: 030
     Dates: start: 20110409, end: 20110411

REACTIONS (9)
  - EYE DISORDER [None]
  - MOVEMENT DISORDER [None]
  - COMA [None]
  - PNEUMONIA [None]
  - SPEECH DISORDER [None]
  - APHASIA [None]
  - DYSPHAGIA [None]
  - COGNITIVE DISORDER [None]
  - COUGH [None]
